FAERS Safety Report 4987927-7 (Version None)
Quarter: 2006Q1

REPORT INFORMATION
  Report Type: 
  Country: None (occurrence: None)
  Receive Date: 20060309
  Receipt Date: 20051230
  Transmission Date: 20060701
  Serious: Yes (Other)
  Sender: FDA-Public Use
  Company Number: 430363

PATIENT

DRUGS (1)
  1. ISOTRETINOIN [Suspect]
     Indication: ACNE
     Dosage: 10 MG 2 PER DAY ORAL
     Route: 048
     Dates: start: 20051121, end: 20051130

REACTIONS (2)
  - NO ADVERSE EFFECT [None]
  - PREGNANCY [None]
